FAERS Safety Report 25752925 (Version 1)
Quarter: 2025Q3

REPORT INFORMATION
  Report Type: Spontaneous
  Country: US (occurrence: US)
  Receive Date: 20250902
  Receipt Date: 20250902
  Transmission Date: 20251020
  Serious: No
  Sender: DAIICHI
  Company Number: US-DAIICHI SANKYO, INC.-DS-2025-161578-USAA

PATIENT
  Sex: Female

DRUGS (1)
  1. DATOPOTAMAB DERUXTECAN [Suspect]
     Active Substance: DATOPOTAMAB DERUXTECAN
     Indication: Breast cancer metastatic
     Route: 065

REACTIONS (1)
  - Stomatitis [Recovered/Resolved]
